FAERS Safety Report 8502044 (Version 2)
Quarter: 2013Q2

REPORT INFORMATION
  Report Type: Spontaneous
  Country: US (occurrence: None)
  Receive Date: 20120327
  Receipt Date: 20120709
  Transmission Date: 20140414
  Serious: Yes (Death)
  Sender: FDA-Public Use
  Company Number: PHHY2011US37842

PATIENT
  Age: 66 Year
  Sex: Female

DRUGS (1)
  1. GLEEVEC [Suspect]
     Dosage: 400 MG,OD, ORAL
     Route: 048

REACTIONS (2)
  - CHRONIC MYELOID LEUKAEMIA [None]
  - Blast crisis in myelogenous leukaemia [None]
